FAERS Safety Report 10698109 (Version 4)
Quarter: 2015Q2

REPORT INFORMATION
  Report Type: Spontaneous
  Country: US (occurrence: US)
  Receive Date: 20150108
  Receipt Date: 20150528
  Transmission Date: 20150821
  Serious: Yes (Other)
  Sender: FDA-Public Use
  Company Number: US-PFIZER INC-2015005089

PATIENT
  Age: 53 Year
  Sex: Female

DRUGS (2)
  1. PROTONIX [Concomitant]
     Active Substance: PANTOPRAZOLE SODIUM
     Indication: GASTROOESOPHAGEAL REFLUX DISEASE
     Dosage: UNK
  2. CHANTIX [Suspect]
     Active Substance: VARENICLINE TARTRATE
     Indication: SMOKING CESSATION THERAPY
     Dosage: 1 DF, 2X/DAY (1 IN AM, 1 IN PM)
     Route: 048
     Dates: start: 20140301, end: 20140501

REACTIONS (25)
  - Alopecia [Not Recovered/Not Resolved]
  - Dysphagia [Not Recovered/Not Resolved]
  - Tinnitus [Recovered/Resolved]
  - Liver disorder [Unknown]
  - Blood iron abnormal [Unknown]
  - Deafness [Not Recovered/Not Resolved]
  - Deafness [Not Recovered/Not Resolved]
  - Parosmia [Not Recovered/Not Resolved]
  - Condition aggravated [Unknown]
  - Parathyroid tumour [Unknown]
  - Agitation [Unknown]
  - Panic disorder [Unknown]
  - Muscle spasms [Not Recovered/Not Resolved]
  - Insomnia [Not Recovered/Not Resolved]
  - Parathyroid disorder [Unknown]
  - Anxiety [Unknown]
  - Blood cholesterol abnormal [Unknown]
  - Abnormal dreams [Recovered/Resolved]
  - Increased upper airway secretion [Not Recovered/Not Resolved]
  - Feeling abnormal [Unknown]
  - Hostility [Unknown]
  - Blood triglycerides abnormal [Unknown]
  - Hypothyroidism [Unknown]
  - Headache [Recovered/Resolved]
  - Sinus disorder [Unknown]

NARRATIVE: CASE EVENT DATE: 201403
